FAERS Safety Report 7154620-4 (Version None)
Quarter: 2010Q4

REPORT INFORMATION
  Report Type: 
  Country: None (occurrence: None)
  Receive Date: 20101214
  Receipt Date: 20091110
  Transmission Date: 20110411
  Serious: No
  Sender: FDA-Public Use
  Company Number: US-AMGEN-KDL363143

PATIENT

DRUGS (12)
  1. ENBREL [Suspect]
     Indication: ANKYLOSING SPONDYLITIS
     Dosage: 50 MG, QWK
     Route: 058
     Dates: start: 20090714
  2. INSULIN [Concomitant]
  3. GLIPIZIDE [Concomitant]
  4. AVANDIA [Concomitant]
  5. VENLAFAXINE HCL [Concomitant]
  6. MONTELUKAST [Concomitant]
  7. METOCLOPRAMIDE [Concomitant]
  8. PANTOPRAZOLE SODIUM [Concomitant]
  9. LORSARTAN POTASSIUM HYDROCHLORIDE [Concomitant]
  10. TOPROL-XL [Concomitant]
  11. EZETIMIBE/SIMVASTATIN [Concomitant]
  12. CELECOXIB [Concomitant]
     Dosage: 200 MG, PRN

REACTIONS (4)
  - CHILLS [None]
  - FATIGUE [None]
  - INFLUENZA LIKE ILLNESS [None]
  - NAUSEA [None]
